FAERS Safety Report 19908169 (Version 1)
Quarter: 2021Q4

REPORT INFORMATION
  Report Type: Report from Study
  Country: MX (occurrence: MX)
  Receive Date: 20211001
  Receipt Date: 20211001
  Transmission Date: 20220303
  Serious: Yes (Other)
  Sender: FDA-Public Use
  Company Number: MX-AMGEN-MEXSL2021150031

PATIENT
  Age: 3 Year
  Sex: Female

DRUGS (1)
  1. BLINCYTO [Suspect]
     Active Substance: BLINATUMOMAB
     Indication: Product used for unknown indication
     Dosage: 15 MICROGRAM
     Route: 065
     Dates: start: 20210909

REACTIONS (4)
  - Unresponsive to stimuli [Unknown]
  - Irritability [Unknown]
  - Crying [Unknown]
  - Abnormal behaviour [Unknown]

NARRATIVE: CASE EVENT DATE: 20210901
